FAERS Safety Report 7614396-0 (Version None)
Quarter: 2011Q3

REPORT INFORMATION
  Report Type: 
  Country: None (occurrence: None)
  Receive Date: 20110708
  Receipt Date: 20110627
  Transmission Date: 20111222
  Serious: Yes (Death)
  Sender: FDA-Public Use
  Company Number: OPER20110146

PATIENT
  Age: 38 Year
  Sex: Female
  Weight: 78.0187 kg

DRUGS (2)
  1. HYDROMORPHONE HCL [Suspect]
     Indication: DRUG ABUSE
  2. OPANA ER [Suspect]
     Indication: DRUG ABUSE
     Dosage: INTRA-NASAL
     Route: 045

REACTIONS (11)
  - BRONCHOPNEUMONIA [None]
  - EXCORIATION [None]
  - UNRESPONSIVE TO STIMULI [None]
  - WRONG TECHNIQUE IN DRUG USAGE PROCESS [None]
  - HEPATIC STEATOSIS [None]
  - SPLEEN DISORDER [None]
  - TOXICITY TO VARIOUS AGENTS [None]
  - DRUG ABUSE [None]
  - ASPIRATION [None]
  - ARTERIOSCLEROSIS CORONARY ARTERY [None]
  - LYMPH NODE CALCIFICATION [None]
